FAERS Safety Report 9517278 (Version 1)
Quarter: 2013Q1

REPORT INFORMATION
  Report Type: Spontaneous
  Country: US (occurrence: None)
  Receive Date: 20130305
  Receipt Date: 20130305
  Transmission Date: 20140127
  Serious: Yes (Hospitalization)
  Sender: FDA-Public Use
  Company Number: 163-21880-12122040

PATIENT
  Age: 69 Year
  Sex: Male

DRUGS (9)
  1. REVLIMID (LENALIDOMIDE) (15 MILLIGRAM, CAPSULES) [Suspect]
     Indication: PLASMA CELL MYELOMA
     Dosage: 1 IN 1 D?10/12/2012 - TEMPORARILY INTERRUPTED
     Route: 048
     Dates: start: 20121012
  2. ACYCLOVIR (ACICLOVIR) (ACICLOVIR) [Concomitant]
  3. ALLOPURINOL [Concomitant]
  4. AMIODARONE HCL (AMIODARONE HYDROCHLORIDE) [Concomitant]
  5. CALCIUM 500 + VITAMIN D (CALCIUM D. ^STADA^) [Concomitant]
  6. CYCLOPHOSPHAMIDE (CYCLOPHOSPHAMIDE) [Concomitant]
  7. DEXAMETHASONE (DEXAMETHASONE) [Concomitant]
  8. DOXYCYCLINE HYCLATE (DOXYCYCLINE HYCLATE) [Concomitant]
  9. COUMADIN (WARFARIN SODIUM) [Concomitant]

REACTIONS (2)
  - Hypoglycaemia [None]
  - Full blood count decreased [None]
